FAERS Safety Report 5939630-4 (Version None)
Quarter: 2008Q4

REPORT INFORMATION
  Report Type: 
  Country: None (occurrence: None)
  Receive Date: 20081030
  Receipt Date: 20081030
  Transmission Date: 20090506
  Serious: Yes (Life-Threatening, Other)
  Sender: FDA-Public Use
  Company Number: None

PATIENT
  Age: 55 Year
  Sex: Female
  Weight: 95.2554 kg

DRUGS (1)
  1. BONIVA [Suspect]
     Indication: OSTEOPENIA
     Dosage: 150 MG ONCE MONTHLY PO
     Route: 048
     Dates: start: 20081009, end: 20081029

REACTIONS (9)
  - ABASIA [None]
  - BACK PAIN [None]
  - DYSPEPSIA [None]
  - EMOTIONAL DISORDER [None]
  - FATIGUE [None]
  - FEAR [None]
  - MIGRAINE [None]
  - PAIN [None]
  - SPINAL DISORDER [None]
